FAERS Safety Report 11271876 (Version 2)
Quarter: 2015Q3

REPORT INFORMATION
  Report Type: Spontaneous
  Country: AR (occurrence: AR)
  Receive Date: 20150715
  Receipt Date: 20150806
  Transmission Date: 20151125
  Serious: Yes (Other)
  Sender: FDA-Public Use
  Company Number: AR-AMGEN-ARGSP2015069829

PATIENT
  Age: 74 Year
  Sex: Female

DRUGS (2)
  1. ASPIRINETAS [Concomitant]
     Active Substance: ASPIRIN
     Dosage: UNK
  2. ENBREL [Suspect]
     Active Substance: ETANERCEPT
     Indication: RHEUMATOID ARTHRITIS
     Dosage: 50 MG, WEEKLY
     Route: 065
     Dates: start: 20130119

REACTIONS (4)
  - Infarction [Unknown]
  - Injection site pain [Unknown]
  - Underdose [Unknown]
  - Injection site haemorrhage [Unknown]
